FAERS Safety Report 20139211 (Version 1)
Quarter: 2021Q4

REPORT INFORMATION
  Report Type: Spontaneous
  Country: US (occurrence: None)
  Receive Date: 20211201
  Receipt Date: 20211201
  Transmission Date: 20220303
  Serious: Yes (Hospitalization, Other)
  Sender: FDA-Public Use
  Company Number: None

PATIENT
  Age: 70 Year
  Sex: Female
  Weight: 63.9 kg

DRUGS (19)
  1. XEMBIFY [Suspect]
     Active Substance: HUMAN IMMUNOGLOBULIN G
     Indication: Myasthenia gravis
     Dosage: OTHER FREQUENCY : 10G ALT W/ 15G QWK;?
     Route: 058
  2. XEMBIFY [Suspect]
     Active Substance: HUMAN IMMUNOGLOBULIN G
     Indication: Myasthenia gravis
     Dosage: OTHER FREQUENCY : 10G ALT W/ 15G QWK;?
     Route: 058
     Dates: start: 20211126
  3. AMBIEN [Concomitant]
     Active Substance: ZOLPIDEM TARTRATE
     Dates: start: 20150716
  4. Armour Thyroid 240mg [Concomitant]
     Dates: start: 20201017
  5. ATENOLOL [Concomitant]
     Active Substance: ATENOLOL
     Dates: start: 20170815
  6. BACLOFEN [Concomitant]
     Active Substance: BACLOFEN
     Dates: start: 20191031
  7. FLUTICASONE [Concomitant]
     Active Substance: FLUTICASONE
     Dates: start: 20191031
  8. Hydroxyzine 10mg [Concomitant]
     Dates: start: 20210302
  9. Isosorbide DN 30mg [Concomitant]
     Dates: start: 20200206
  10. Mestinon 60mg [Concomitant]
     Dates: start: 20150716
  11. Norco 10/325mg [Concomitant]
     Dates: start: 20150718
  12. OXYCODONE [Concomitant]
     Active Substance: OXYCODONE
     Dates: start: 20210622
  13. Prevacid 30mg [Concomitant]
     Dates: start: 20170815
  14. REGLAN [Concomitant]
     Active Substance: METOCLOPRAMIDE HYDROCHLORIDE
     Dates: start: 20150718
  15. Restoril 30mg [Concomitant]
     Dates: start: 20150718
  16. Soliris 1200mg [Concomitant]
     Dates: start: 20180605
  17. Soma 350mg [Concomitant]
     Dates: start: 20170815
  18. SPIRONOLACTONE [Concomitant]
     Active Substance: SPIRONOLACTONE
     Dates: start: 20151216
  19. XANAX [Concomitant]
     Active Substance: ALPRAZOLAM
     Dates: start: 20170815

REACTIONS (2)
  - Deep vein thrombosis [None]
  - Pulmonary embolism [None]

NARRATIVE: CASE EVENT DATE: 20211127
